FAERS Safety Report 24983969 (Version 1)
Quarter: 2025Q1

REPORT INFORMATION
  Report Type: Spontaneous
  Country: US (occurrence: US)
  Receive Date: 20250219
  Receipt Date: 20250219
  Transmission Date: 20250408
  Serious: No
  Sender: OTSUKA
  Company Number: US-OTSUKA-2024_019132

PATIENT
  Age: 27 Year

DRUGS (52)
  1. BUSULFAN [Suspect]
     Active Substance: BUSULFAN
     Indication: Hodgkin^s disease
     Route: 065
  2. BUSULFAN [Suspect]
     Active Substance: BUSULFAN
     Indication: Diffuse large B-cell lymphoma
  3. BUSULFAN [Suspect]
     Active Substance: BUSULFAN
     Indication: Shwachman-Diamond syndrome
  4. BUSULFAN [Suspect]
     Active Substance: BUSULFAN
     Indication: Acute myeloid leukaemia
  5. AZACITIDINE [Concomitant]
     Active Substance: AZACITIDINE
     Indication: Hodgkin^s disease
     Route: 065
  6. AZACITIDINE [Concomitant]
     Active Substance: AZACITIDINE
     Indication: Shwachman-Diamond syndrome
     Route: 065
  7. AZACITIDINE [Concomitant]
     Active Substance: AZACITIDINE
     Indication: Diffuse large B-cell lymphoma
  8. AZACITIDINE [Concomitant]
     Active Substance: AZACITIDINE
     Indication: Acute myeloid leukaemia
  9. FLUDARABINE [Concomitant]
     Active Substance: FLUDARABINE PHOSPHATE
     Indication: Hodgkin^s disease
     Route: 065
  10. FLUDARABINE [Concomitant]
     Active Substance: FLUDARABINE PHOSPHATE
     Indication: Diffuse large B-cell lymphoma
  11. FLUDARABINE [Concomitant]
     Active Substance: FLUDARABINE PHOSPHATE
     Indication: Shwachman-Diamond syndrome
  12. FLUDARABINE [Concomitant]
     Active Substance: FLUDARABINE PHOSPHATE
     Indication: Acute myeloid leukaemia
  13. RITUXIMAB [Concomitant]
     Active Substance: RITUXIMAB
     Indication: Hodgkin^s disease
     Route: 065
  14. RITUXIMAB [Concomitant]
     Active Substance: RITUXIMAB
     Indication: Diffuse large B-cell lymphoma
  15. RITUXIMAB [Concomitant]
     Active Substance: RITUXIMAB
     Indication: Shwachman-Diamond syndrome
  16. RITUXIMAB [Concomitant]
     Active Substance: RITUXIMAB
     Indication: Acute myeloid leukaemia
  17. CYCLOPHOSPHAMIDE [Concomitant]
     Active Substance: CYCLOPHOSPHAMIDE
     Indication: Hodgkin^s disease
     Route: 065
  18. CYCLOPHOSPHAMIDE [Concomitant]
     Active Substance: CYCLOPHOSPHAMIDE
     Indication: Diffuse large B-cell lymphoma
  19. CYCLOPHOSPHAMIDE [Concomitant]
     Active Substance: CYCLOPHOSPHAMIDE
     Indication: Shwachman-Diamond syndrome
  20. CYCLOPHOSPHAMIDE [Concomitant]
     Active Substance: CYCLOPHOSPHAMIDE
     Indication: Acute myeloid leukaemia
  21. DAUNORUBICIN [Concomitant]
     Active Substance: DAUNORUBICIN
     Indication: Hodgkin^s disease
     Route: 065
  22. DAUNORUBICIN [Concomitant]
     Active Substance: DAUNORUBICIN
     Indication: Diffuse large B-cell lymphoma
  23. DAUNORUBICIN [Concomitant]
     Active Substance: DAUNORUBICIN
     Indication: Shwachman-Diamond syndrome
  24. DAUNORUBICIN [Concomitant]
     Active Substance: DAUNORUBICIN
     Indication: Acute myeloid leukaemia
  25. VINCRISTINE [Concomitant]
     Active Substance: VINCRISTINE
     Indication: Hodgkin^s disease
     Route: 065
  26. VINCRISTINE [Concomitant]
     Active Substance: VINCRISTINE
     Indication: Diffuse large B-cell lymphoma
  27. VINCRISTINE [Concomitant]
     Active Substance: VINCRISTINE
     Indication: Shwachman-Diamond syndrome
  28. VINCRISTINE [Concomitant]
     Active Substance: VINCRISTINE
     Indication: Acute myeloid leukaemia
  29. PREDNISONE [Concomitant]
     Active Substance: PREDNISONE
     Indication: Hodgkin^s disease
     Route: 065
  30. PREDNISONE [Concomitant]
     Active Substance: PREDNISONE
     Indication: Diffuse large B-cell lymphoma
  31. PREDNISONE [Concomitant]
     Active Substance: PREDNISONE
     Indication: Shwachman-Diamond syndrome
  32. PREDNISONE [Concomitant]
     Active Substance: PREDNISONE
     Indication: Acute myeloid leukaemia
  33. METHYLPREDNISOLONE [Concomitant]
     Active Substance: METHYLPREDNISOLONE
     Indication: Hodgkin^s disease
     Dosage: 30 MG/M2 (TWICE DAILY ON DAYS 1-7 (COP))
     Route: 065
  34. METHYLPREDNISOLONE [Concomitant]
     Active Substance: METHYLPREDNISOLONE
     Indication: Diffuse large B-cell lymphoma
  35. METHYLPREDNISOLONE [Concomitant]
     Active Substance: METHYLPREDNISOLONE
     Indication: Shwachman-Diamond syndrome
  36. METHYLPREDNISOLONE [Concomitant]
     Active Substance: METHYLPREDNISOLONE
     Indication: Acute myeloid leukaemia
  37. OBINUTUZUMAB [Concomitant]
     Active Substance: OBINUTUZUMAB
     Indication: Hodgkin^s disease
     Route: 065
  38. OBINUTUZUMAB [Concomitant]
     Active Substance: OBINUTUZUMAB
     Indication: Diffuse large B-cell lymphoma
  39. OBINUTUZUMAB [Concomitant]
     Active Substance: OBINUTUZUMAB
     Indication: Shwachman-Diamond syndrome
  40. OBINUTUZUMAB [Concomitant]
     Active Substance: OBINUTUZUMAB
     Indication: Acute myeloid leukaemia
  41. VENETOCLAX [Concomitant]
     Active Substance: VENETOCLAX
     Indication: Hodgkin^s disease
     Route: 065
  42. VENETOCLAX [Concomitant]
     Active Substance: VENETOCLAX
     Indication: Diffuse large B-cell lymphoma
     Route: 048
  43. VENETOCLAX [Concomitant]
     Active Substance: VENETOCLAX
     Indication: Shwachman-Diamond syndrome
  44. VENETOCLAX [Concomitant]
     Active Substance: VENETOCLAX
     Indication: Leukaemia
  45. VENETOCLAX [Concomitant]
     Active Substance: VENETOCLAX
     Indication: Acute myeloid leukaemia
  46. CYTARABINE [Concomitant]
     Active Substance: CYTARABINE
     Indication: Prophylaxis
     Route: 037
  47. LAPINE T-LYMPHOCYTE IMMUNE GLOBULIN [Concomitant]
     Active Substance: LAPINE T-LYMPHOCYTE IMMUNE GLOBULIN
     Indication: Hodgkin^s disease
     Route: 065
  48. LAPINE T-LYMPHOCYTE IMMUNE GLOBULIN [Concomitant]
     Active Substance: LAPINE T-LYMPHOCYTE IMMUNE GLOBULIN
     Indication: Diffuse large B-cell lymphoma
  49. LAPINE T-LYMPHOCYTE IMMUNE GLOBULIN [Concomitant]
     Active Substance: LAPINE T-LYMPHOCYTE IMMUNE GLOBULIN
     Indication: Shwachman-Diamond syndrome
  50. LAPINE T-LYMPHOCYTE IMMUNE GLOBULIN [Concomitant]
     Active Substance: LAPINE T-LYMPHOCYTE IMMUNE GLOBULIN
     Indication: Acute myeloid leukaemia
  51. MYCOPHENOLIC ACID [Concomitant]
     Active Substance: MYCOPHENOLIC ACID
     Indication: Immunosuppression
     Route: 065
  52. CYCLOSPORINE [Concomitant]
     Active Substance: CYCLOSPORINE
     Indication: Immunosuppression
     Route: 065

REACTIONS (1)
  - Product use in unapproved indication [Unknown]
